FAERS Safety Report 24910347 (Version 3)
Quarter: 2025Q3

REPORT INFORMATION
  Report Type: Report from Study
  Country: IN (occurrence: IN)
  Receive Date: 20250131
  Receipt Date: 20250730
  Transmission Date: 20251020
  Serious: Yes (Hospitalization, Other)
  Sender: NOVARTIS
  Company Number: IN-002147023-NVSC2022IN107123

PATIENT
  Age: 56 Year
  Sex: Female

DRUGS (4)
  1. RIBOCICLIB [Suspect]
     Active Substance: RIBOCICLIB
     Indication: Breast cancer metastatic
     Dosage: 600 MG, QD
     Route: 048
     Dates: start: 20210402
  2. RIBOCICLIB [Suspect]
     Active Substance: RIBOCICLIB
     Indication: Hormone receptor positive HER2 negative breast cancer
     Dosage: 600 MG, QD
     Route: 048
     Dates: start: 20210412
  3. RIBOCICLIB [Suspect]
     Active Substance: RIBOCICLIB
     Dosage: 600 MG, QD
     Route: 048
     Dates: start: 20210413
  4. FULVESTRANT [Suspect]
     Active Substance: FULVESTRANT
     Indication: Product used for unknown indication
     Route: 065
     Dates: start: 202104

REACTIONS (20)
  - Pneumonitis [Recovered/Resolved]
  - Lower respiratory tract infection [Recovered/Resolved]
  - Breast cancer metastatic [Unknown]
  - Malignant neoplasm progression [Unknown]
  - Pneumonia [Unknown]
  - Pneumonitis [Unknown]
  - Metastases to lung [Recovering/Resolving]
  - Cough [Recovered/Resolved]
  - Pyrexia [Recovered/Resolved]
  - Cough [Unknown]
  - Pyrexia [Unknown]
  - Dyspnoea [Recovered/Resolved]
  - Lung opacity [Not Recovered/Not Resolved]
  - Asthenia [Not Recovered/Not Resolved]
  - Dyspnoea exertional [Unknown]
  - Ventricular extrasystoles [Unknown]
  - Pulmonary mass [Unknown]
  - Breast mass [Not Recovered/Not Resolved]
  - Cardiomegaly [Unknown]
  - Lung consolidation [Unknown]

NARRATIVE: CASE EVENT DATE: 20210402
